FAERS Safety Report 6789999-6 (Version None)
Quarter: 2010Q2

REPORT INFORMATION
  Report Type: 
  Country: None (occurrence: None)
  Receive Date: 20100624
  Receipt Date: 20100609
  Transmission Date: 20101027
  Serious: Yes (Other)
  Sender: FDA-Public Use
  Company Number: NL-MYLANLABS-2010S1010290

PATIENT
  Age: 57 Year
  Sex: Female

DRUGS (1)
  1. AZATHIOPRINE [Suspect]
     Indication: CROHN'S DISEASE
     Dates: start: 20100526, end: 20100602

REACTIONS (5)
  - ARTHRALGIA [None]
  - CHILLS [None]
  - GAIT DISTURBANCE [None]
  - MYALGIA [None]
  - PYREXIA [None]
